FAERS Safety Report 12808576 (Version 2)
Quarter: 2016Q4

REPORT INFORMATION
  Report Type: Spontaneous
  Country: US (occurrence: US)
  Receive Date: 20161004
  Receipt Date: 20161005
  Transmission Date: 20170207
  Serious: Yes (Other)
  Sender: FDA-Public Use
  Company Number: US-JNJFOC-20160928244

PATIENT
  Age: 61 Year
  Sex: Male
  Weight: 96.16 kg

DRUGS (14)
  1. ARGININE HYDROCHLORIDE [Concomitant]
     Active Substance: ARGININE HYDROCHLORIDE
     Route: 048
     Dates: start: 20160506
  2. LECITHIN [Concomitant]
     Active Substance: LECITHIN
     Route: 048
     Dates: start: 20160729
  3. TYLENOL EXTRA STRENGTH [Suspect]
     Active Substance: ACETAMINOPHEN
     Indication: PRODUCT USED FOR UNKNOWN INDICATION
     Dosage: ONCE A DAY OR AS NECESSARY
     Route: 048
     Dates: start: 20130917
  4. CHOLECALCIFEROL [Concomitant]
     Active Substance: CHOLECALCIFEROL
     Route: 048
     Dates: start: 20160729
  5. ZINC [Concomitant]
     Active Substance: ZINC\ZINC CHLORIDE
     Route: 048
     Dates: start: 20160729
  6. SAW PALMETTO [Concomitant]
     Active Substance: SAW PALMETTO
     Route: 048
     Dates: start: 20160506
  7. ASCORBIC ACID. [Concomitant]
     Active Substance: ASCORBIC ACID
     Route: 048
     Dates: start: 20160506
  8. VIAGRA [Concomitant]
     Active Substance: SILDENAFIL CITRATE
     Route: 065
     Dates: start: 20160126
  9. CYANOCOBALAMIN. [Concomitant]
     Active Substance: CYANOCOBALAMIN
     Route: 048
     Dates: start: 20160729
  10. XARELTO [Suspect]
     Active Substance: RIVAROXABAN
     Indication: PRODUCT USED FOR UNKNOWN INDICATION
     Route: 048
     Dates: start: 20160804
  11. MAGNESIUM OXIDE. [Concomitant]
     Active Substance: MAGNESIUM OXIDE
     Route: 048
     Dates: start: 20160506
  12. ASPIRIN. [Concomitant]
     Active Substance: ASPIRIN
     Dates: start: 20141110
  13. FOLIC ACID. [Concomitant]
     Active Substance: FOLIC ACID
     Route: 048
     Dates: start: 20160126
  14. MELATONIN [Concomitant]
     Active Substance: MELATONIN
     Route: 048
     Dates: start: 20160729

REACTIONS (3)
  - Implant site haemorrhage [Unknown]
  - Cardiac monitoring [Unknown]
  - Scab [Unknown]

NARRATIVE: CASE EVENT DATE: 20160831
